FAERS Safety Report 14149669 (Version 2)
Quarter: 2018Q1

REPORT INFORMATION
  Report Type: Spontaneous
  Country: FR (occurrence: FR)
  Receive Date: 20171101
  Receipt Date: 20180305
  Transmission Date: 20180508
  Serious: Yes (Death, Other)
  Sender: FDA-Public Use
  Company Number: FR-ABBVIE-17P-056-2145556-00

PATIENT
  Age: 55 Year
  Sex: Male

DRUGS (3)
  1. VENCLEXTA [Suspect]
     Active Substance: VENETOCLAX
     Indication: MANTLE CELL LYMPHOMA RECURRENT
     Route: 048
     Dates: start: 20171019, end: 20171020
  2. VENCLEXTA [Suspect]
     Active Substance: VENETOCLAX
     Indication: CHRONIC LYMPHOCYTIC LEUKAEMIA RECURRENT
     Route: 048
     Dates: start: 20170720, end: 20170721
  3. VENCLEXTA [Suspect]
     Active Substance: VENETOCLAX
     Route: 048
     Dates: start: 20171023, end: 20171023

REACTIONS (15)
  - Tumour lysis syndrome [Recovered/Resolved]
  - Incorrect dose administered [Unknown]
  - Liver disorder [Unknown]
  - Hepatic failure [Unknown]
  - Nephrotic syndrome [Unknown]
  - Renal failure [Recovered/Resolved]
  - Febrile bone marrow aplasia [Unknown]
  - Oedema peripheral [Unknown]
  - Cholestasis [Unknown]
  - Lymphocytosis [Unknown]
  - Glomerular vascular disorder [Unknown]
  - Mantle cell lymphoma [Fatal]
  - Bacterial sepsis [Fatal]
  - Acute kidney injury [Recovered/Resolved]
  - Hepatosplenomegaly [Unknown]

NARRATIVE: CASE EVENT DATE: 201707
